FAERS Safety Report 23797718 (Version 1)
Quarter: 2024Q2

REPORT INFORMATION
  Report Type: Spontaneous
  Country: DE (occurrence: DE)
  Receive Date: 20240430
  Receipt Date: 20240430
  Transmission Date: 20240715
  Serious: Yes (Hospitalization)
  Sender: FDA-Public Use
  Company Number: None

PATIENT
  Age: 63 Year
  Sex: Male

DRUGS (9)
  1. ROSUVASTATIN CALCIUM [Suspect]
     Active Substance: ROSUVASTATIN CALCIUM
     Indication: Product used for unknown indication
  2. EMPAGLIFLOZIN, METFORMIN [Concomitant]
  3. CANDESARTAN [Concomitant]
     Active Substance: CANDESARTAN
  4. TORSEMIDE [Concomitant]
     Active Substance: TORSEMIDE
  5. BENSERAZIDE\LEVODOPA [Concomitant]
     Active Substance: BENSERAZIDE\LEVODOPA
  6. AMIODARONE [Concomitant]
     Active Substance: AMIODARONE
  7. BISOPROLOL [Concomitant]
     Active Substance: BISOPROLOL\BISOPROLOL FUMARATE
  8. EDOXABAN [Concomitant]
     Active Substance: EDOXABAN
  9. EZETIMIBE [Concomitant]
     Active Substance: EZETIMIBE

REACTIONS (5)
  - Quadriparesis [Recovering/Resolving]
  - Somnolence [Recovering/Resolving]
  - Paresis [Recovering/Resolving]
  - Myopathy [Recovering/Resolving]
  - Myalgia [Recovering/Resolving]

NARRATIVE: CASE EVENT DATE: 20240227
